FAERS Safety Report 17282065 (Version 1)
Quarter: 2020Q1

REPORT INFORMATION
  Report Type: Report from Study
  Country: JP (occurrence: JP)
  Receive Date: 20200117
  Receipt Date: 20200117
  Transmission Date: 20200409
  Serious: Yes (Hospitalization)
  Sender: FDA-Public Use
  Company Number: JP-ROCHE-2471585

PATIENT
  Age: 2 Year
  Sex: Female

DRUGS (7)
  1. RITUXIMAB. [Suspect]
     Active Substance: RITUXIMAB
     Route: 041
     Dates: start: 20190813, end: 20190813
  2. CICLOSPORIN [Concomitant]
     Active Substance: CYCLOSPORINE
     Indication: NEPHROTIC SYNDROME
     Route: 048
     Dates: start: 20191003
  3. RITUXIMAB. [Suspect]
     Active Substance: RITUXIMAB
     Indication: NEPHROTIC SYNDROME
     Route: 041
     Dates: start: 20190806, end: 20190806
  4. RITUXIMAB. [Suspect]
     Active Substance: RITUXIMAB
     Route: 041
     Dates: start: 20190827, end: 20190827
  5. DAIPHEN [Concomitant]
     Active Substance: SULFAMETHOXAZOLE\TRIMETHOPRIM
     Indication: INFECTION PROPHYLAXIS
     Route: 048
     Dates: start: 20190522
  6. PREDONINE [Concomitant]
     Active Substance: PREDNISOLONE
     Indication: NEPHROTIC SYNDROME
     Route: 048
     Dates: start: 20190829
  7. RITUXIMAB. [Suspect]
     Active Substance: RITUXIMAB
     Route: 041
     Dates: start: 20190820, end: 20190820

REACTIONS (1)
  - Infection [Recovered/Resolved]

NARRATIVE: CASE EVENT DATE: 20191015
